FAERS Safety Report 17840488 (Version 1)
Quarter: 2020Q2

REPORT INFORMATION
  Report Type: Other
  Country: CA (occurrence: CA)
  Receive Date: 20200529
  Receipt Date: 20200529
  Transmission Date: 20200714
  Serious: Yes (Other)
  Sender: FDA-Public Use
  Company Number: CA-COVIS PHARMA B.V.-2020COV00219

PATIENT
  Age: 40 Year
  Sex: Female

DRUGS (19)
  1. NOVORAPID [Suspect]
     Active Substance: INSULIN ASPART
     Dosage: 2 DOSAGE UNITS (DAILY DOSE)
     Route: 058
  2. FORMOTEROL FUMARATE [Suspect]
     Active Substance: FORMOTEROL FUMARATE
  3. GLYCOPYRRONIUM BROMIDE [Suspect]
     Active Substance: GLYCOPYRRONIUM
  4. TRAZODONE [Suspect]
     Active Substance: TRAZODONE HYDROCHLORIDE
     Dosage: 100 MG (DAILY DOSE)
  5. REACTINE [Concomitant]
  6. ROSUVASTATIN. [Concomitant]
     Active Substance: ROSUVASTATIN
  7. PANTOPRAZOLE MAGNESIUM [Concomitant]
     Active Substance: PANTOPRAZOLE MAGNESIUM
  8. ACLIDINIUM BROMIDE. [Suspect]
     Active Substance: ACLIDINIUM BROMIDE
     Dosage: 2 DOSAGE UNITS (DAILY DOSE)
  9. ARNUITY ELLIPTA [Suspect]
     Active Substance: FLUTICASONE FUROATE
  10. SINGULAIR [Suspect]
     Active Substance: MONTELUKAST SODIUM
  11. SPIRIVA [Suspect]
     Active Substance: TIOTROPIUM BROMIDE MONOHYDRATE
  12. EZETIMIBE. [Concomitant]
     Active Substance: EZETIMIBE
  13. INDACATEROL MALEATE [Suspect]
     Active Substance: INDACATEROL MALEATE
     Route: 048
  14. PULMICORT TURBUHALER [Suspect]
     Active Substance: BUDESONIDE
  15. SALBUTAMOL [Suspect]
     Active Substance: ALBUTEROL
  16. ZENHALE [Suspect]
     Active Substance: FORMOTEROL FUMARATE\MOMETASONE FUROATE
     Dosage: 4 DOSAGE UNITS (DAILY DOSE)
  17. ACETYLSALICYLIC ACID [Concomitant]
     Active Substance: ASPIRIN
  18. ALVESCO [Suspect]
     Active Substance: CICLESONIDE
  19. ATROVENT [Suspect]
     Active Substance: IPRATROPIUM BROMIDE

REACTIONS (25)
  - Asthma [Unknown]
  - Depression [Unknown]
  - Eczema [Unknown]
  - Cough [Unknown]
  - Coronary artery disease [Unknown]
  - Hyper IgE syndrome [Unknown]
  - Blood test abnormal [Unknown]
  - Obstructive airways disorder [Unknown]
  - Pruritus [Unknown]
  - Abscess [Unknown]
  - Dyspnoea [Unknown]
  - Polycystic ovaries [Unknown]
  - Restless legs syndrome [Unknown]
  - Type 2 diabetes mellitus [Unknown]
  - Weight decreased [Unknown]
  - Restrictive pulmonary disease [Unknown]
  - Skin lesion [Unknown]
  - Pneumonia [Unknown]
  - Dyslipidaemia [Unknown]
  - Gastrooesophageal reflux disease [Unknown]
  - Hypertension [Unknown]
  - Myocardial infarction [Unknown]
  - Sleep apnoea syndrome [Unknown]
  - Drug ineffective [Unknown]
  - Condition aggravated [Unknown]
